FAERS Safety Report 4804236-7 (Version None)
Quarter: 2005Q4

REPORT INFORMATION
  Report Type: 
  Country: None (occurrence: None)
  Receive Date: 20051017
  Receipt Date: 20051003
  Transmission Date: 20060501
  Serious: Yes (Death)
  Sender: FDA-Public Use
  Company Number: B0395825A

PATIENT
  Age: 44 Year

DRUGS (4)
  1. WELLBUTRIN SR [Suspect]
     Dosage: ORAL
     Route: 048
  2. LITHIUM SALT (LITHIUM SALT) [Suspect]
  3. PROPRANOLOL HYDROCHLORIDE [Suspect]
  4. UNKNOWN (FORMULATION UNKNOWN) (UNKNOWN) [Suspect]

REACTIONS (3)
  - CARDIO-RESPIRATORY ARREST [None]
  - COMPLETED SUICIDE [None]
  - OVERDOSE [None]
